FAERS Safety Report 10478190 (Version 1)
Quarter: 2014Q3

REPORT INFORMATION
  Report Type: Spontaneous
  Country: HU (occurrence: HU)
  Receive Date: 20140926
  Receipt Date: 20140926
  Transmission Date: 20150326
  Serious: Yes (Other)
  Sender: FDA-Public Use
  Company Number: HU-WATSON-2014-20474

PATIENT
  Age: 69 Year
  Sex: Female

DRUGS (3)
  1. BOPACATIN [Suspect]
     Active Substance: CARBOPLATIN
     Indication: OVARIAN CANCER
     Dosage: 660 MG, TOTAL
     Route: 065
     Dates: start: 20140721, end: 20140721
  2. AVASTIN [Suspect]
     Active Substance: BEVACIZUMAB
     Indication: OVARIAN CANCER
     Dosage: 540 MG, TOTAL
     Route: 065
     Dates: start: 20140721, end: 20140721
  3. PACLITAXEL KABI [Suspect]
     Active Substance: PACLITAXEL
     Indication: OVARIAN CANCER
     Dosage: 307 MG, TOTAL
     Route: 065
     Dates: start: 20140721, end: 20140721

REACTIONS (1)
  - Neutropenia [Recovered/Resolved]

NARRATIVE: CASE EVENT DATE: 20140728
